FAERS Safety Report 13373534 (Version 1)
Quarter: 2017Q1

REPORT INFORMATION
  Report Type: Spontaneous
  Country: KR (occurrence: KR)
  Receive Date: 20170327
  Receipt Date: 20170327
  Transmission Date: 20170429
  Serious: Yes (Death, Other)
  Sender: FDA-Public Use
  Company Number: KR-SA-2017SA049414

PATIENT
  Age: 25 Year
  Sex: Female

DRUGS (1)
  1. ZOLPIDEM [Suspect]
     Active Substance: ZOLPIDEM\ZOLPIDEM TARTRATE
     Route: 065

REACTIONS (1)
  - Toxicity to various agents [Fatal]
